FAERS Safety Report 24754703 (Version 1)
Quarter: 2024Q4

REPORT INFORMATION
  Report Type: Report from Study
  Country: US (occurrence: US)
  Receive Date: 20241219
  Receipt Date: 20241219
  Transmission Date: 20250115
  Serious: Yes (Other)
  Sender: AMNEAL
  Company Number: US-AMNEAL PHARMACEUTICALS-2024-AMRX-04304

PATIENT
  Age: 65 Year
  Sex: Female
  Weight: 48.526 kg

DRUGS (3)
  1. CARBIDOPA\LEVODOPA [Suspect]
     Active Substance: CARBIDOPA\LEVODOPA
     Indication: Parkinson^s disease
     Dosage: 36.25-145 MG-TAKE 1 CAPSULE 6 TIMES A DAY AND 48.75-195 MG-TAKE 1 CAPSULE 6 TIMES A DAY
     Route: 048
  2. CARBIDOPA\LEVODOPA [Suspect]
     Active Substance: CARBIDOPA\LEVODOPA
     Dosage: 36.25/145 MG TAKE 2 CAPSULES 6 TIMES DAILY AND 48.75/195 MG TAKE 2 CAPSULES 5 TIMES DAILY
     Route: 048
     Dates: start: 20211121
  3. CARBIDOPA\LEVODOPA [Suspect]
     Active Substance: CARBIDOPA\LEVODOPA
     Dosage: (145- 195 MG) 1 CAPSULES, 6 /DAY
     Route: 048

REACTIONS (4)
  - Parkinson^s disease [Unknown]
  - Feeling abnormal [Unknown]
  - Dysgraphia [Unknown]
  - Product use issue [Unknown]

NARRATIVE: CASE EVENT DATE: 20220725
